FAERS Safety Report 7797021-8 (Version None)
Quarter: 2011Q4

REPORT INFORMATION
  Report Type: 
  Country: None (occurrence: None)
  Receive Date: 20111005
  Receipt Date: 20111003
  Transmission Date: 20120403
  Serious: Yes (Other)
  Sender: FDA-Public Use
  Company Number: IT-PFIZER INC-2011236132

PATIENT
  Age: 78 Year
  Sex: Male

DRUGS (10)
  1. UNASYN [Suspect]
     Indication: URINARY TRACT INFECTION
     Dosage: 4.5 G, DAILY
     Route: 042
     Dates: start: 20110616, end: 20110618
  2. SPIRIVA [Concomitant]
     Indication: BRONCHITIS CHRONIC
     Dosage: 18 UG, UNK
     Route: 002
     Dates: start: 20110614, end: 20110624
  3. AMIODARONE HCL [Concomitant]
     Indication: ARRHYTHMIA PROPHYLAXIS
     Dosage: 200 MG, UNK
     Route: 048
     Dates: start: 20110101, end: 20110624
  4. LENTO-KALIUM [Concomitant]
     Indication: HYPOKALAEMIA
     Dosage: 600 MG, UNK
     Route: 048
     Dates: start: 20110617, end: 20110624
  5. MIRCERA [Concomitant]
     Indication: NEPHROGENIC ANAEMIA
     Dosage: 100 UG, UNK
     Route: 058
     Dates: start: 20110615, end: 20110615
  6. ASPIRIN [Concomitant]
     Indication: CORONARY ANGIOPLASTY
     Dosage: 100 MG, UNK
     Route: 048
     Dates: start: 20110101, end: 20110624
  7. PANTOPRAZOLE SODIUM [Concomitant]
     Indication: GASTRITIS
     Dosage: 40 MG, UNK
     Route: 048
     Dates: start: 20110101, end: 20110624
  8. NITROGLYCERIN [Concomitant]
     Indication: MYOCARDIAL ISCHAEMIA
     Dosage: 10 MG, UNK
     Route: 062
     Dates: start: 20110101, end: 20110624
  9. PLAVIX [Concomitant]
     Indication: CORONARY ANGIOPLASTY
     Dosage: 75 MG, UNK
     Route: 048
     Dates: start: 20110615, end: 20110624
  10. FUROSEMIDE [Concomitant]
     Indication: RENAL FAILURE CHRONIC
     Dosage: 125 MG, UNK
     Route: 048
     Dates: start: 20110529, end: 20110624

REACTIONS (3)
  - VASCULITIS [None]
  - TOXIC SKIN ERUPTION [None]
  - PURPURA [None]
